FAERS Safety Report 25311970 (Version 1)
Quarter: 2025Q2

REPORT INFORMATION
  Report Type: Spontaneous
  Country: CN (occurrence: CN)
  Receive Date: 20250514
  Receipt Date: 20250514
  Transmission Date: 20250717
  Serious: Yes (Life-Threatening, Hospitalization, Other)
  Sender: BAYER HEALTHCARE PHARMACEUTICALS INC.
  Company Number: CN-BAYER-2025A064300

PATIENT
  Age: 73 Year
  Sex: Male
  Weight: 62 kg

DRUGS (8)
  1. ULTRAVIST [Suspect]
     Active Substance: IOPROMIDE
     Indication: Computerised tomogram heart
     Route: 042
     Dates: start: 20250508, end: 20250508
  2. BISOPROLOL FUMARATE [Concomitant]
     Active Substance: BISOPROLOL FUMARATE
     Indication: Coronary artery disease
     Dosage: 5 MG, QD
     Route: 048
     Dates: start: 20250506, end: 20250506
  3. CEFTAZIDIME [Concomitant]
     Active Substance: CEFTAZIDIME
     Dosage: 2 G, BID
     Dates: start: 20250504, end: 20250504
  4. ROSUVASTATIN CALCIUM [Concomitant]
     Active Substance: ROSUVASTATIN CALCIUM
     Indication: Coronary artery disease
     Dosage: 10 MG, QD
     Route: 048
     Dates: start: 20250506, end: 20250506
  5. AMBROXOL HYDROCHLORIDE [Concomitant]
     Active Substance: AMBROXOL HYDROCHLORIDE
     Indication: Cough
     Dosage: 30 MG, TID
     Route: 042
     Dates: start: 20250504, end: 20250504
  6. AMBROXOL HYDROCHLORIDE [Concomitant]
     Active Substance: AMBROXOL HYDROCHLORIDE
     Indication: Productive cough
  7. An ma mei min [Concomitant]
     Indication: Cough
     Dosage: 10 ML, TID
     Route: 048
     Dates: start: 20250504, end: 20250504
  8. An ma mei min [Concomitant]
     Indication: Productive cough

REACTIONS (22)
  - Contrast media allergy [Recovering/Resolving]
  - Cardio-respiratory arrest [Recovering/Resolving]
  - Oxygen saturation immeasurable [Recovered/Resolved]
  - Loss of consciousness [Recovered/Resolved]
  - Unresponsive to stimuli [None]
  - Acute kidney injury [Recovering/Resolving]
  - Acute pulmonary oedema [Recovering/Resolving]
  - Acute respiratory distress syndrome [None]
  - Respiratory failure [None]
  - Hypoxic-ischaemic encephalopathy [None]
  - Acidosis [None]
  - Blood pressure increased [Not Recovered/Not Resolved]
  - Chest discomfort [None]
  - Respiratory disorder [None]
  - Cyanosis [None]
  - Mydriasis [Recovered/Resolved]
  - Increased upper airway secretion [None]
  - Obstructive airways disorder [None]
  - Pupillary reflex impaired [Not Recovered/Not Resolved]
  - Breath sounds abnormal [Not Recovered/Not Resolved]
  - Rales [Not Recovered/Not Resolved]
  - Productive cough [None]

NARRATIVE: CASE EVENT DATE: 20250508
